FAERS Safety Report 25585680 (Version 3)
Quarter: 2025Q3

REPORT INFORMATION
  Report Type: Spontaneous
  Country: CN (occurrence: CN)
  Receive Date: 20250721
  Receipt Date: 20250729
  Transmission Date: 20251020
  Serious: Yes (Life-Threatening, Hospitalization, Other)
  Sender: PFIZER
  Company Number: CN-MLMSERVICE-20250709-PI571761-00218-1

PATIENT
  Age: 48 Year
  Sex: Female

DRUGS (6)
  1. METHOTREXATE SODIUM [Suspect]
     Active Substance: METHOTREXATE SODIUM
     Indication: Diffuse large B-cell lymphoma
     Route: 042
     Dates: start: 20240413
  2. METHOTREXATE SODIUM [Suspect]
     Active Substance: METHOTREXATE SODIUM
     Indication: Central nervous system lymphoma
  3. TISLELIZUMAB [Concomitant]
     Active Substance: TISLELIZUMAB
     Indication: Diffuse large B-cell lymphoma
     Dates: start: 20240412
  4. TISLELIZUMAB [Concomitant]
     Active Substance: TISLELIZUMAB
     Indication: Central nervous system lymphoma
  5. ZANUBRUTINIB [Concomitant]
     Active Substance: ZANUBRUTINIB
     Indication: Diffuse large B-cell lymphoma
     Dosage: 160 MG, 2X/DAY
     Dates: start: 20240412
  6. ZANUBRUTINIB [Concomitant]
     Active Substance: ZANUBRUTINIB
     Indication: Central nervous system lymphoma

REACTIONS (3)
  - Capillary leak syndrome [Recovered/Resolved]
  - Acute kidney injury [Recovered/Resolved]
  - Chemotherapeutic drug level increased [Recovered/Resolved]

NARRATIVE: CASE EVENT DATE: 20240413
